FAERS Safety Report 8285677-5 (Version None)
Quarter: 2012Q2

REPORT INFORMATION
  Report Type: 
  Country: None (occurrence: None)
  Receive Date: 20120413
  Receipt Date: 20120404
  Transmission Date: 20120825
  Serious: Yes (Other)
  Sender: FDA-Public Use
  Company Number: NL-BAXTER-2012BAX002205

PATIENT
  Sex: Female

DRUGS (6)
  1. KIOVIG [Suspect]
     Indication: MULTIPLE SCLEROSIS
     Dosage: KIOVIG 100MG/ML VIAL 50 (5) 1X PER 28 DAYS
     Route: 042
     Dates: start: 20070312
  2. KIOVIG [Suspect]
     Dosage: 100MG/ML VIAL 200ML (20G) 1X PER 28 DAYS
     Route: 042
     Dates: start: 20120319
  3. KIOVIG [Suspect]
     Indication: MULTIPLE SCLEROSIS
     Dosage: 1.00 KIOVIG 100MG/ML VIAL 25ML (2.5G) 1X PER 28 DAYS
     Route: 042
     Dates: start: 20070312
  4. KIOVIG [Suspect]
     Dosage: 1.00 KIOVIG 100MG/ML VIAL 25ML (2.5G) 1X PER 28 DAYS
     Route: 042
     Dates: start: 20120319
  5. KIOVIG [Suspect]
     Dosage: KIOVIG 100MG/ML VIAL 50 (5) 1X PER 28 DAYS
     Route: 042
     Dates: start: 20120319
  6. KIOVIG [Suspect]
     Indication: MULTIPLE SCLEROSIS
     Dosage: 1.00 KIOVIG 100MG/ML VIAL 200ML (20G) 1X PER 28 DAYS
     Route: 042
     Dates: start: 20070312

REACTIONS (4)
  - RESPIRATORY DISORDER [None]
  - MULTIPLE SCLEROSIS [None]
  - ANGINA PECTORIS [None]
  - DIZZINESS [None]
